FAERS Safety Report 15678373 (Version 5)
Quarter: 2022Q1

REPORT INFORMATION
  Report Type: Spontaneous
  Country: US (occurrence: US)
  Receive Date: 20181201
  Receipt Date: 20220214
  Transmission Date: 20220423
  Serious: Yes (Hospitalization)
  Sender: FDA-Public Use
  Company Number: US-PFIZER INC-2018061768

PATIENT
  Age: 72 Year
  Sex: Female
  Weight: 104.33 kg

DRUGS (4)
  1. SOMATROPIN [Suspect]
     Active Substance: SOMATROPIN
     Indication: Growth hormone deficiency
     Dosage: 0.6 MG, 1X/DAY
     Dates: start: 2001, end: 2018
  2. SOMATROPIN [Suspect]
     Active Substance: SOMATROPIN
     Dosage: 0.8 MG, 1X/DAY
     Dates: end: 2018
  3. SOMATROPIN [Suspect]
     Active Substance: SOMATROPIN
     Dosage: 0.6 MG, 1X/DAY (PER DAY FOR 3 MONTHS)
     Dates: start: 2018, end: 2018
  4. SOMATROPIN [Suspect]
     Active Substance: SOMATROPIN
     Dosage: 0.6 MG DAILY DOSE

REACTIONS (7)
  - Fatigue [Recovered/Resolved]
  - Oedema [Recovered/Resolved]
  - Somnolence [Recovered/Resolved]
  - Cortisol increased [Recovered/Resolved]
  - Intentional product use issue [Unknown]
  - Product dose omission issue [Unknown]
  - Malaise [Unknown]

NARRATIVE: CASE EVENT DATE: 20180101
